FAERS Safety Report 25218403 (Version 1)
Quarter: 2025Q2

REPORT INFORMATION
  Report Type: Spontaneous
  Country: US (occurrence: US)
  Receive Date: 20250421
  Receipt Date: 20250421
  Transmission Date: 20250716
  Serious: Yes (Other)
  Sender: DOMPE FARMACEUTICI
  Company Number: US-FARMAPROD-202504-1219

PATIENT
  Age: 68 Year
  Sex: Female

DRUGS (1)
  1. OXERVATE [Suspect]
     Active Substance: CENEGERMIN-BKBJ
     Indication: Illness
     Route: 047
     Dates: start: 20250331

REACTIONS (2)
  - Shoulder operation [Unknown]
  - Eye pain [Unknown]

NARRATIVE: CASE EVENT DATE: 20250409
